FAERS Safety Report 12312224 (Version 1)
Quarter: 2016Q2

REPORT INFORMATION
  Report Type: Spontaneous
  Country: GB (occurrence: GB)
  Receive Date: 20160428
  Receipt Date: 20160428
  Transmission Date: 20160815
  Serious: Yes (Hospitalization)
  Sender: FDA-Public Use
  Company Number: GB-AUROBINDO-AUR-APL-2016-04821

PATIENT
  Age: 56 Year
  Sex: Male

DRUGS (2)
  1. LANSOPRAZOLE. [Concomitant]
     Active Substance: LANSOPRAZOLE
     Indication: PRODUCT USED FOR UNKNOWN INDICATION
     Dosage: TAKEN ON DAYS PATIENT TOOK NAPROXEN.
     Route: 065
  2. NAPROXEN. [Suspect]
     Active Substance: NAPROXEN
     Indication: PAIN IN EXTREMITY
     Dosage: TAKEN FOR A COUPLE OF DAYS EACH MONTH.
     Route: 048
     Dates: start: 20151101, end: 20160403

REACTIONS (4)
  - Duodenal ulcer haemorrhage [Recovering/Resolving]
  - Gastritis [Recovering/Resolving]
  - Gastritis haemorrhagic [Recovering/Resolving]
  - Duodenitis [Recovering/Resolving]

NARRATIVE: CASE EVENT DATE: 201604
